FAERS Safety Report 15916937 (Version 2)
Quarter: 2019Q2

REPORT INFORMATION
  Report Type: Spontaneous
  Country: PT (occurrence: PT)
  Receive Date: 20190205
  Receipt Date: 20190429
  Transmission Date: 20190711
  Serious: Yes (Other)
  Sender: FDA-Public Use
  Company Number: PT-MYLANLABS-2018M1066064

PATIENT
  Sex: Female

DRUGS (22)
  1. EMTRICITABINE/TENOFOVIR DISOPROXIL FUMARATE [Suspect]
     Active Substance: EMTRICITABINE\TENOFOVIR DISOPROXIL FUMARATE
     Dosage: UNK
     Route: 065
     Dates: start: 201407, end: 20151204
  2. TIVICAY [Suspect]
     Active Substance: DOLUTEGRAVIR SODIUM
     Dosage: UNK
     Route: 065
     Dates: start: 20151204, end: 20151204
  3. METAMIZOLE [Concomitant]
     Active Substance: METAMIZOLE
     Indication: PAIN
     Dosage: DOSAGE FORM: UNSPECIFIED
     Route: 065
  4. NORVIR [Suspect]
     Active Substance: RITONAVIR
     Dosage: UNK
     Dates: start: 201407
  5. TIVICAY [Suspect]
     Active Substance: DOLUTEGRAVIR SODIUM
     Dosage: UNK
     Route: 065
     Dates: start: 20151204, end: 20151226
  6. EMTRICITABINE/TENOFOVIR DISOPROXIL FUMARATE [Suspect]
     Active Substance: EMTRICITABINE\TENOFOVIR DISOPROXIL FUMARATE
     Indication: HIV INFECTION
     Dosage: UNK
     Route: 065
     Dates: start: 2009, end: 2009
  7. PREZISTA [Suspect]
     Active Substance: DARUNAVIR ETHANOLATE
     Indication: HIV INFECTION
     Dosage: UNK
     Route: 048
     Dates: start: 2009, end: 2013
  8. PREZISTA [Suspect]
     Active Substance: DARUNAVIR ETHANOLATE
     Dosage: 800 MILLIGRAM
     Route: 048
     Dates: start: 20151227, end: 201702
  9. TIVICAY [Suspect]
     Active Substance: DOLUTEGRAVIR SODIUM
     Dosage: UNK
     Route: 065
     Dates: start: 201706
  10. RITONAVIR. [Suspect]
     Active Substance: RITONAVIR
     Indication: HIV INFECTION
     Dosage: 100 MG, UNK, DOSAGE FORM: UNSPECIFIED
     Route: 065
  11. NORVIR [Suspect]
     Active Substance: RITONAVIR
     Dosage: UNK
     Dates: start: 20151227, end: 201702
  12. NORVIR [Suspect]
     Active Substance: RITONAVIR
     Dosage: UNK
     Route: 065
     Dates: start: 201706
  13. NORVIR [Suspect]
     Active Substance: RITONAVIR
     Dosage: UNK
     Route: 065
     Dates: start: 201706
  14. TIVICAY [Suspect]
     Active Substance: DOLUTEGRAVIR SODIUM
     Dosage: 300 MILLIGRAM, QD
     Route: 065
     Dates: start: 20151227, end: 201702
  15. TIVICAY [Suspect]
     Active Substance: DOLUTEGRAVIR SODIUM
     Dosage: UNK
     Dates: start: 2015, end: 2015
  16. EMTRICITABINE/TENOFOVIR DISOPROXIL FUMARATE [Suspect]
     Active Substance: EMTRICITABINE\TENOFOVIR DISOPROXIL FUMARATE
     Dosage: UNK
     Route: 065
     Dates: start: 20151204, end: 20151226
  17. PREZISTA [Suspect]
     Active Substance: DARUNAVIR ETHANOLATE
     Dosage: 800 MG, UNK
     Route: 048
     Dates: start: 201706
  18. EMTRICITABINE/TENOFOVIR DISOPROXIL FUMARATE [Suspect]
     Active Substance: EMTRICITABINE\TENOFOVIR DISOPROXIL FUMARATE
     Dosage: DOSAGE FORM: UNSPECIFIED
     Route: 065
     Dates: start: 2009, end: 2013
  19. DOLUTEGRAVIR [Suspect]
     Active Substance: DOLUTEGRAVIR
     Indication: HIV INFECTION
     Dosage: 300 MG, QD
     Route: 065
     Dates: start: 2016
  20. NORVIR [Suspect]
     Active Substance: RITONAVIR
     Indication: HIV INFECTION
     Dosage: UNK
     Route: 065
     Dates: start: 2009, end: 2013
  21. NORVIR [Suspect]
     Active Substance: RITONAVIR
     Dosage: 100 MILLIGRAM
     Route: 065
     Dates: start: 2015, end: 20151204
  22. TIVICAY [Suspect]
     Active Substance: DOLUTEGRAVIR SODIUM
     Indication: HIV INFECTION
     Dosage: UNK
     Route: 065
     Dates: start: 2015, end: 2015

REACTIONS (33)
  - Lipoma [Recovering/Resolving]
  - Abdominal distension [Recovered/Resolved]
  - Throat irritation [Recovering/Resolving]
  - Haemorrhage [Recovered/Resolved]
  - Fibrocystic breast disease [Unknown]
  - Pulmonary tuberculosis [Unknown]
  - Spleen disorder [Recovered/Resolved]
  - Rheumatoid factor increased [Not Recovered/Not Resolved]
  - Hepatitis C [Recovering/Resolving]
  - Respiratory tract infection [Recovering/Resolving]
  - Tooth loss [Recovering/Resolving]
  - Joint swelling [Recovering/Resolving]
  - Hyperthyroidism [Unknown]
  - Uterine leiomyoma [Unknown]
  - Weight decreased [Recovering/Resolving]
  - Dyspnoea [Recovering/Resolving]
  - Vaginal lesion [Unknown]
  - Hypokinesia [Not Recovered/Not Resolved]
  - Leiomyoma [Recovering/Resolving]
  - Pain [Recovering/Resolving]
  - Arthralgia [Unknown]
  - Depression [Unknown]
  - Cyst [Recovering/Resolving]
  - Thyroid mass [Recovering/Resolving]
  - Thrombocytopenia [Recovering/Resolving]
  - Urinary tract infection [Unknown]
  - Hypoaesthesia oral [Recovering/Resolving]
  - Alopecia [Recovered/Resolved]
  - Constipation [Recovering/Resolving]
  - Bronchitis chronic [Unknown]
  - Visual impairment [Recovered/Resolved]
  - Menorrhagia [Not Recovered/Not Resolved]
  - Goitre [Unknown]

NARRATIVE: CASE EVENT DATE: 2013
